FAERS Safety Report 13990591 (Version 2)
Quarter: 2017Q4

REPORT INFORMATION
  Report Type: Spontaneous
  Country: ES (occurrence: ES)
  Receive Date: 20170920
  Receipt Date: 20171002
  Transmission Date: 20180321
  Serious: Yes (Life-Threatening, Hospitalization, Other)
  Sender: FDA-Public Use
  Company Number: ES-TEVA-808004ROM

PATIENT
  Age: 55 Year
  Sex: Male

DRUGS (8)
  1. REMIFENTANIL [Concomitant]
     Active Substance: REMIFENTANIL
     Route: 065
  2. METHASONE [Concomitant]
  3. DOCETAXEL. [Suspect]
     Active Substance: DOCETAXEL
     Indication: METASTASES TO CENTRAL NERVOUS SYSTEM
     Route: 065
  4. PREDNISONE. [Concomitant]
     Active Substance: PREDNISONE
     Route: 065
  5. DOCETAXEL. [Suspect]
     Active Substance: DOCETAXEL
     Indication: PROSTATE CANCER STAGE IV
  6. PROPOFOL. [Concomitant]
     Active Substance: PROPOFOL
     Route: 065
  7. LEVETIRACETAM. [Concomitant]
     Active Substance: LEVETIRACETAM
     Route: 065
  8. ROCURONIUM [Concomitant]
     Active Substance: ROCURONIUM BROMIDE
     Route: 065

REACTIONS (1)
  - Posterior reversible encephalopathy syndrome [Recovering/Resolving]
